FAERS Safety Report 23556445 (Version 1)
Quarter: 2024Q1

REPORT INFORMATION
  Report Type: Spontaneous
  Country: DE (occurrence: DE)
  Receive Date: 20240223
  Receipt Date: 20240223
  Transmission Date: 20240410
  Serious: Yes (Hospitalization, Other)
  Sender: FDA-Public Use
  Company Number: DE-BRISTOL-MYERS SQUIBB COMPANY-2023-135015

PATIENT
  Age: 77 Year
  Sex: Female
  Weight: 55 kg

DRUGS (12)
  1. OXALIPLATIN [Suspect]
     Active Substance: OXALIPLATIN
     Indication: Gastric cancer
     Dosage: 140 MILLIGRAM, ONCE A DAY
     Route: 042
     Dates: start: 20230717
  2. FLUOROURACIL [Suspect]
     Active Substance: FLUOROURACIL
     Indication: Gastric cancer
     Dosage: 3000 MILLIGRAM, ONCE A DAY
     Route: 042
     Dates: start: 20230822
  3. CAPECITABINE [Suspect]
     Active Substance: CAPECITABINE
     Indication: Gastric cancer
     Dosage: 2000 MILLIGRAM, TWO TIMES A DAY (DAILY)
     Route: 048
     Dates: start: 20230717
  4. ACETAMINOPHEN\CAFFEINE\PROPYPHENAZONE [Suspect]
     Active Substance: ACETAMINOPHEN\CAFFEINE\PROPYPHENAZONE
     Indication: Product used for unknown indication
     Dosage: 500 MILLIGRAM
     Route: 048
  5. OPDIVO [Suspect]
     Active Substance: NIVOLUMAB
     Indication: Gastric cancer
     Dosage: 360 MILLIGRAM, ONCE A DAY
     Route: 042
     Dates: start: 20230721
  6. METAMIZOLE [Concomitant]
     Active Substance: METAMIZOLE
     Indication: Gastric cancer
     Dosage: UNK (40)
     Route: 048
  7. AMLODIPINE BESYLATE [Concomitant]
     Active Substance: AMLODIPINE BESYLATE
     Indication: Product used for unknown indication
     Dosage: 5 MILLIGRAM, ONCE A DAY
     Route: 048
  8. CYANOCOBALAMIN [Concomitant]
     Active Substance: CYANOCOBALAMIN
     Indication: Product used for unknown indication
     Dosage: 1000 MICROGRAM, ONCE A DAY
     Route: 058
     Dates: start: 20230729
  9. ONDANSETRON [Concomitant]
     Active Substance: ONDANSETRON
     Indication: Prophylaxis
     Dosage: 4 MILLIGRAM
     Route: 048
  10. DALTEPARIN SODIUM [Concomitant]
     Active Substance: DALTEPARIN SODIUM
     Indication: Prophylaxis
     Dosage: UNK (5000 I.E.)
     Route: 058
     Dates: start: 20230725
  11. ASPIRIN [Concomitant]
     Active Substance: ASPIRIN
     Indication: Prophylaxis
     Dosage: 100 MILLIGRAM, ONCE A DAY
     Route: 048
  12. PANCRELIPASE [Concomitant]
     Active Substance: PANCRELIPASE
     Indication: Product used for unknown indication
     Dosage: UNK (10000 I.E. 3 DAILY)
     Route: 048

REACTIONS (10)
  - Malignant neoplasm progression [Unknown]
  - Syncope [Recovered/Resolved]
  - Hypokalaemia [Recovered/Resolved]
  - Urinary tract infection [Recovered/Resolved]
  - Hypophagia [Recovered/Resolved]
  - Hyponatraemia [Recovered/Resolved]
  - Weight decreased [Unknown]
  - Fluid intake reduced [Unknown]
  - Dehydration [Recovered/Resolved]
  - General physical health deterioration [Unknown]

NARRATIVE: CASE EVENT DATE: 20230806
